FAERS Safety Report 13353786 (Version 1)
Quarter: 2017Q1

REPORT INFORMATION
  Report Type: Spontaneous
  Country: US (occurrence: US)
  Receive Date: 20170320
  Receipt Date: 20170320
  Transmission Date: 20170429
  Serious: Yes (Other)
  Sender: FDA-Public Use
  Company Number: None

PATIENT
  Age: 80 Year
  Sex: Female
  Weight: 70.2 kg

DRUGS (7)
  1. JUVENON [Concomitant]
  2. VICTOZA [Suspect]
     Active Substance: LIRAGLUTIDE
     Indication: DIABETES MELLITUS
     Dosage: ?          QUANTITY:1 INJECTION(S);?
     Route: 058
  3. XIIDRA OPHTHALMIC SOLUTION [Concomitant]
  4. CALCIUM [Concomitant]
     Active Substance: CALCIUM
  5. CINNAMON. [Concomitant]
     Active Substance: CINNAMON
  6. MULTIPLE VITAMIN [Concomitant]
     Active Substance: VITAMINS
  7. COENZYMEQ10 [Concomitant]

REACTIONS (2)
  - Abdominal pain upper [None]
  - Nausea [None]

NARRATIVE: CASE EVENT DATE: 20170214
